FAERS Safety Report 6578038-8 (Version None)
Quarter: 2010Q1

REPORT INFORMATION
  Report Type: 
  Country: None (occurrence: None)
  Receive Date: 20100211
  Receipt Date: 20100127
  Transmission Date: 20100710
  Serious: Yes (Other)
  Sender: FDA-Public Use
  Company Number: IN-ROCHE-659631

PATIENT
  Sex: Female
  Weight: 56 kg

DRUGS (6)
  1. NAPROXEN [Suspect]
     Indication: RHEUMATOID ARTHRITIS
     Route: 048
     Dates: start: 20081025
  2. BLINDED RITUXIMAB [Suspect]
     Indication: RHEUMATOID ARTHRITIS
     Dosage: DOSE FORM REPORTED AS IV.
     Route: 042
     Dates: start: 20070611
  3. BLINDED RITUXIMAB [Suspect]
     Dosage: FRQUENCY NOT REPORTED.
     Route: 042
     Dates: start: 20090511, end: 20090929
  4. METHOTREXATE [Suspect]
     Indication: RHEUMATOID ARTHRITIS
     Route: 048
     Dates: start: 20090911, end: 20090929
  5. METHOTREXATE [Suspect]
     Route: 048
     Dates: start: 20091117
  6. FOLIC ACID [Suspect]
     Indication: RHEUMATOID ARTHRITIS
     Dosage: FREQUENCY REPORTED AS 'BIS'.
     Route: 048
     Dates: start: 20090911

REACTIONS (1)
  - ABORTION INDUCED [None]
